FAERS Safety Report 12410970 (Version 1)
Quarter: 2016Q2

REPORT INFORMATION
  Report Type: Spontaneous
  Country: US (occurrence: None)
  Receive Date: 20160526
  Receipt Date: 20160526
  Transmission Date: 20160815
  Serious: No
  Sender: FDA-Public Use
  Company Number: None

PATIENT
  Age: 70 Year
  Sex: Male

DRUGS (3)
  1. TRAVATAN [Concomitant]
     Active Substance: TRAVOPROST
  2. PILOCARPINE. [Concomitant]
     Active Substance: PILOCARPINE
  3. 2%BRIMONIDINE ALLERGAN [Suspect]
     Active Substance: BRIMONIDINE TARTRATE
     Indication: EXFOLIATION GLAUCOMA
     Dosage: 1 DROP ONCE TOPICAL
     Route: 061
     Dates: start: 20160518

REACTIONS (1)
  - Conjunctival hyperaemia [None]

NARRATIVE: CASE EVENT DATE: 20160520
